FAERS Safety Report 17808419 (Version 4)
Quarter: 2020Q3

REPORT INFORMATION
  Report Type: Spontaneous
  Country: RO (occurrence: RO)
  Receive Date: 20200520
  Receipt Date: 20200720
  Transmission Date: 20201102
  Serious: Yes (Hospitalization, Other)
  Sender: FDA-Public Use
  Company Number: PHHY2019RO191998

PATIENT
  Age: 66 Year
  Sex: Female
  Weight: 73 kg

DRUGS (4)
  1. HERCEPTIN [Suspect]
     Active Substance: TRASTUZUMAB
     Indication: BREAST CANCER METASTATIC
     Dosage: 600 MG
     Route: 058
     Dates: start: 20101109
  2. BONDRONAT [Suspect]
     Active Substance: IBANDRONATE SODIUM
     Indication: BREAST CANCER METASTATIC
     Dosage: 1 DF, QD (1 PILL PER DAY)
     Route: 048
  3. ZOMETA [Suspect]
     Active Substance: ZOLEDRONIC ACID
     Indication: BREAST CANCER METASTATIC
  4. ZOMETA [Suspect]
     Active Substance: ZOLEDRONIC ACID
     Indication: METASTASES TO BONE
     Dosage: UNK
     Route: 065

REACTIONS (11)
  - Investigation abnormal [Not Recovered/Not Resolved]
  - Ejection fraction abnormal [Unknown]
  - Asthenia [Unknown]
  - Metastases to spine [Unknown]
  - Infection [Unknown]
  - Hypertension [Unknown]
  - Ejection fraction decreased [Recovered/Resolved]
  - Osteonecrosis of jaw [Unknown]
  - Pain [Unknown]
  - Tooth disorder [Recovered/Resolved]
  - Malaise [Recovered/Resolved]

NARRATIVE: CASE EVENT DATE: 20190718
